FAERS Safety Report 5753234-8 (Version None)
Quarter: 2008Q2

REPORT INFORMATION
  Report Type: 
  Country: None (occurrence: None)
  Receive Date: 20080530
  Receipt Date: 20070511
  Transmission Date: 20081010
  Serious: No
  Sender: FDA-Public Use
  Company Number: A0649869A

PATIENT
  Age: 9 Year
  Sex: Male

DRUGS (4)
  1. VENTOLIN [Suspect]
     Indication: ASTHMA
     Route: 055
  2. FLOVENT [Concomitant]
  3. SINGULAIR [Concomitant]
  4. ZYRTEC [Concomitant]

REACTIONS (2)
  - DRUG INEFFECTIVE [None]
  - PHARMACEUTICAL PRODUCT COMPLAINT [None]
